FAERS Safety Report 15356470 (Version 1)
Quarter: 2018Q3

REPORT INFORMATION
  Report Type: Spontaneous
  Country: US (occurrence: US)
  Receive Date: 20180906
  Receipt Date: 20180906
  Transmission Date: 20181010
  Serious: No
  Sender: FDA-Public Use
  Company Number: US-BIOGEN-2018BI00623034

PATIENT
  Sex: Female

DRUGS (1)
  1. TECFIDERA [Suspect]
     Active Substance: DIMETHYL FUMARATE
     Indication: MULTIPLE SCLEROSIS
     Dosage: MAINTENANCE DOSE
     Route: 048
     Dates: start: 20140922

REACTIONS (10)
  - Blood chloride abnormal [Not Recovered/Not Resolved]
  - Flushing [Unknown]
  - Red blood cell count abnormal [Unknown]
  - White blood cell count abnormal [Unknown]
  - Burning sensation [Recovered/Resolved]
  - Blood lactic acid increased [Not Recovered/Not Resolved]
  - Back pain [Unknown]
  - Blood carbon monoxide abnormal [Unknown]
  - Carbon dioxide abnormal [Not Recovered/Not Resolved]
  - Paraesthesia [Recovered/Resolved]
